FAERS Safety Report 11487484 (Version 1)
Quarter: 2015Q3

REPORT INFORMATION
  Report Type: Spontaneous
  Country: US (occurrence: US)
  Receive Date: 20150910
  Receipt Date: 20150910
  Transmission Date: 20151125
  Serious: Yes (Other)
  Sender: FDA-Public Use
  Company Number: US-ROCHE-1016084

PATIENT
  Age: 29 Year
  Sex: Female

DRUGS (2)
  1. COPEGUS [Suspect]
     Active Substance: RIBAVIRIN
     Indication: HEPATITIS
     Route: 065
     Dates: end: 20110513
  2. PEGASYS [Suspect]
     Active Substance: PEGINTERFERON ALFA-2A
     Indication: HEPATITIS
     Route: 065
     Dates: end: 20110513

REACTIONS (1)
  - Pregnancy [Unknown]
